FAERS Safety Report 4521270-5 (Version None)
Quarter: 2004Q4

REPORT INFORMATION
  Report Type: 
  Country: None (occurrence: None)
  Receive Date: 20041208
  Receipt Date: 20041202
  Transmission Date: 20050328
  Serious: Yes (Hospitalization)
  Sender: FDA-Public Use
  Company Number: DEPFP-S-20040045

PATIENT
  Sex: Male

DRUGS (2)
  1. NAVELBINE [Suspect]
     Indication: PROSTATE CANCER METASTATIC
     Route: 042
  2. TAXOTERE [Concomitant]
     Indication: DRUG USE FOR UNKNOWN INDICATION

REACTIONS (4)
  - ASTHENIA [None]
  - BLOOD CREATINE PHOSPHOKINASE INCREASED [None]
  - MYALGIA [None]
  - POLYNEUROPATHY [None]
